FAERS Safety Report 9151425 (Version 1)
Quarter: 2013Q1

REPORT INFORMATION
  Report Type: Report from Study
  Country: US (occurrence: US)
  Receive Date: 20130308
  Receipt Date: 20130308
  Transmission Date: 20140127
  Serious: Yes (Hospitalization)
  Sender: FDA-Public Use
  Company Number: US-BAYER-200610901BWH

PATIENT
  Age: 65 Year
  Sex: Male
  Weight: 50 kg

DRUGS (9)
  1. SORAFENIB (RAF KINASE INHIBITOR) [Suspect]
     Indication: NON-SMALL CELL LUNG CANCER
     Dosage: 400 MG, BID
     Route: 048
     Dates: start: 20041116, end: 20050111
  2. ZOMETA [Concomitant]
  3. COLACE [Concomitant]
  4. COMBIVENT [IPRATROPIUM BROMIDE,SALBUTAMOL SULFATE] [Concomitant]
  5. DIOVAN [VALSARTAN] [Concomitant]
  6. FLOVENT [Concomitant]
  7. MARINOL [Concomitant]
  8. OXANDRIN [Concomitant]
  9. PLENDIL [Concomitant]

REACTIONS (7)
  - Periodontal disease [Not Recovered/Not Resolved]
  - Osteonecrosis [Not Recovered/Not Resolved]
  - Dyspnoea [Not Recovered/Not Resolved]
  - Fatigue [Not Recovered/Not Resolved]
  - Disease progression [Not Recovered/Not Resolved]
  - Gingival bleeding [Not Recovered/Not Resolved]
  - Metastases to central nervous system [Not Recovered/Not Resolved]
